FAERS Safety Report 8699200 (Version 2)
Quarter: 2012Q4

REPORT INFORMATION
  Report Type: 
  Country: US (occurrence: US)
  Receive Date: 20120802
  Receipt Date: 20121217
  Transmission Date: 20130627
  Serious: No
  Sender: FDA-Public Use
  Company Number: PHEH2012US014742

PATIENT
  Age: 58 Year
  Sex: Female
  Weight: 54.42 kg

DRUGS (3)
  1. GILENYA [Suspect]
     Indication: MULTIPLE SCLEROSIS
     Dosage: 0.5 mg, QD
     Route: 048
     Dates: start: 20120524
  2. VIT D [Concomitant]
     Dosage: 5000 U, QD
  3. ESTROGEN [Concomitant]

REACTIONS (2)
  - Nausea [Recovering/Resolving]
  - Headache [Recovering/Resolving]
